FAERS Safety Report 14345886 (Version 1)
Quarter: 2017Q4

REPORT INFORMATION
  Report Type: Spontaneous
  Country: US (occurrence: US)
  Receive Date: 20171231
  Receipt Date: 20171231
  Transmission Date: 20180321
  Serious: Yes (Hospitalization)
  Sender: FDA-Public Use
  Company Number: None

PATIENT
  Age: 68 Year
  Sex: Male
  Weight: 54.2 kg

DRUGS (1)
  1. PREDNISONE. [Suspect]
     Active Substance: PREDNISONE
     Indication: SUBSTANCE-INDUCED PSYCHOTIC DISORDER
     Dosage: DOSE - MG?FREQUENCY - OTHER PO
     Route: 048
     Dates: start: 20171106, end: 20171214

REACTIONS (9)
  - Shift to the left [None]
  - Encephalopathy [None]
  - Chronic obstructive pulmonary disease [None]
  - Delirium [None]
  - Aggression [None]
  - Pneumonia [None]
  - Leukocytosis [None]
  - Respiratory failure [None]
  - Substance-induced psychotic disorder [None]

NARRATIVE: CASE EVENT DATE: 20171213
